FAERS Safety Report 21544170 (Version 1)
Quarter: 2022Q4

REPORT INFORMATION
  Report Type: Spontaneous
  Country: US (occurrence: US)
  Receive Date: 20221102
  Receipt Date: 20221102
  Transmission Date: 20230113
  Serious: No
  Sender: FDA-Public Use
  Company Number: US-TEVA-2022-US-2040354

PATIENT
  Sex: Female

DRUGS (3)
  1. LORAZEPAM [Suspect]
     Active Substance: LORAZEPAM
     Indication: Product used for unknown indication
     Dosage: 1 MILLIGRAM DAILY;
     Route: 065
  2. LORAZEPAM [Suspect]
     Active Substance: LORAZEPAM
     Indication: Hyperacusis
  3. LORAZEPAM [Suspect]
     Active Substance: LORAZEPAM
     Indication: Tinnitus

REACTIONS (4)
  - Wrong technique in product usage process [Unknown]
  - Drug effect less than expected [Unknown]
  - Product physical issue [Unknown]
  - Product use in unapproved indication [Unknown]
